FAERS Safety Report 11889644 (Version 4)
Quarter: 2016Q1

REPORT INFORMATION
  Report Type: Report from Study
  Country: US (occurrence: US)
  Receive Date: 20160105
  Receipt Date: 20160211
  Transmission Date: 20160526
  Serious: Yes (Other)
  Sender: FDA-Public Use
  Company Number: US-BAYER-2015-480143

PATIENT
  Age: 63 Year
  Sex: Male

DRUGS (4)
  1. STIVARGA [Suspect]
     Active Substance: REGORAFENIB
     Indication: COLON CANCER
     Dosage: 160 MG, QD X 2WEEKS
     Route: 048
  2. STIVARGA [Suspect]
     Active Substance: REGORAFENIB
     Indication: COLON CANCER
     Dosage: 120 MG QD FOR 1 WEEK. THEN 160MG QD FOR 2 WEEKS, THEN 7 DAYS OFF WITH NO MEDICATION
     Route: 048
     Dates: start: 20151119
  3. STIVARGA [Suspect]
     Active Substance: REGORAFENIB
     Indication: COLON CANCER
     Dosage: 120 MG, QD X 1WEEK
     Route: 048
     Dates: start: 20151119
  4. STIVARGA [Suspect]
     Active Substance: REGORAFENIB
     Indication: COLON CANCER
     Dosage: 120 MG, QD
     Route: 048
     Dates: end: 20151225

REACTIONS (10)
  - Weight decreased [None]
  - Dyspnoea [None]
  - Pruritus [None]
  - Renal disorder [None]
  - Muscle fatigue [None]
  - Back disorder [None]
  - Scratch [None]
  - Bone pain [None]
  - Fatigue [None]
  - Pruritus generalised [None]
